FAERS Safety Report 9825197 (Version 1)
Quarter: 2013Q4

REPORT INFORMATION
  Report Type: Spontaneous
  Country: US (occurrence: None)
  Receive Date: 20131028
  Receipt Date: 20131028
  Transmission Date: 20140711
  Serious: Yes (Other)
  Sender: FDA-Public Use
  Company Number: 2013US001053

PATIENT
  Age: 58 Year
  Sex: Female
  Weight: 72.6 kg

DRUGS (11)
  1. ICLUSIG [Suspect]
     Indication: CHRONIC MYELOID LEUKAEMIA
     Route: 048
     Dates: start: 20130110, end: 20130114
  2. ADVAIR 500 (FLUTICASONE PROPIONATE, SALMETEROL XINAFOATE) [Concomitant]
  3. ALBUTEROL (SALBUTAMOL SULFATE) [Concomitant]
  4. LASIX (FUROSEMIDE) [Concomitant]
  5. KCI (KCI) [Concomitant]
  6. SYNTHROID (LEVOTHYROXINE SODIUM) [Concomitant]
  7. ALLOPURINOL (ALLOPRUINOL) [Concomitant]
  8. VITAMIN D (COLECALCIFEROL) [Concomitant]
  9. NORVASC (AMLODIPINE BESILATE) [Concomitant]
  10. CARDIZEM (DILTIAZEM) (UNKNOWN) (DILTIAZEM) [Concomitant]
  11. SPIRIVA (TIOTROPIUM BROMIDE) (TIOTROPIUM BROMIDE) [Concomitant]

REACTIONS (5)
  - Productive cough [None]
  - Hypertension [None]
  - Pyrexia [None]
  - Myalgia [None]
  - Dyspnoea [None]
